FAERS Safety Report 5744246-9 (Version None)
Quarter: 2008Q2

REPORT INFORMATION
  Report Type: 
  Country: None (occurrence: None)
  Receive Date: 20080516
  Receipt Date: 20080516
  Transmission Date: 20081010
  Serious: No
  Sender: FDA-Public Use
  Company Number: None

PATIENT
  Age: 82 Year
  Sex: Female
  Weight: 51.4 kg

DRUGS (11)
  1. AMIODARONE HCL [Suspect]
     Indication: ARRHYTHMIA
     Dosage: 200 MG DAILY PO
     Route: 048
     Dates: start: 20080218, end: 20080325
  2. ASPIRIN [Concomitant]
  3. CALCIFEROL [Concomitant]
  4. CALCIUM CARBONATE [Concomitant]
  5. CITALOPRAM HYDROBROMIDE [Concomitant]
  6. VITAMIN D2 [Concomitant]
  7. FENTANYL TRANSDERMAL [Concomitant]
  8. GABAPENTIN [Concomitant]
  9. HEPARIN [Concomitant]
  10. OMEPRAZOLE [Concomitant]
  11. SIMVASTATIN [Concomitant]

REACTIONS (4)
  - ABDOMINAL PAIN [None]
  - ASCITES [None]
  - HEPATIC CIRRHOSIS [None]
  - HEPATIC NEOPLASM [None]
